FAERS Safety Report 17237600 (Version 2)
Quarter: 2020Q2

REPORT INFORMATION
  Report Type: Spontaneous
  Country: US (occurrence: US)
  Receive Date: 20200106
  Receipt Date: 20200403
  Transmission Date: 20200713
  Serious: No
  Sender: FDA-Public Use
  Company Number: US-009507513-1912USA007720

PATIENT
  Sex: Female

DRUGS (1)
  1. GANIRELIX ACETATE INJECTION [Suspect]
     Active Substance: GANIRELIX ACETATE
     Indication: ANOVULATORY CYCLE
     Dosage: 250/.5
     Route: 058

REACTIONS (2)
  - Needle issue [Unknown]
  - Injection site pain [Recovered/Resolved]
